FAERS Safety Report 8554226-6 (Version None)
Quarter: 2012Q3

REPORT INFORMATION
  Report Type: 
  Country: None (occurrence: None)
  Receive Date: 20120731
  Receipt Date: 20120717
  Transmission Date: 20120928
  Serious: No
  Sender: FDA-Public Use
  Company Number: US-ASTRAZENECA-2011SE47299

PATIENT
  Age: 51 Year
  Sex: Male

DRUGS (5)
  1. SEROQUEL [Suspect]
     Indication: SLEEP DISORDER
     Route: 048
  2. SEROQUEL [Suspect]
     Route: 048
  3. SEROQUEL [Suspect]
     Route: 048
  4. SEROQUEL [Suspect]
     Indication: BIPOLAR DISORDER
     Route: 048
  5. RISPERDAL [Concomitant]

REACTIONS (9)
  - ACTIVITIES OF DAILY LIVING IMPAIRED [None]
  - DRUG DOSE OMISSION [None]
  - DISSOCIATION [None]
  - SOMNOLENCE [None]
  - FATIGUE [None]
  - LETHARGY [None]
  - SOMNAMBULISM [None]
  - THERAPEUTIC RESPONSE UNEXPECTED [None]
  - INSOMNIA [None]
